FAERS Safety Report 23727360 (Version 1)
Quarter: 2024Q2

REPORT INFORMATION
  Report Type: Spontaneous
  Country: CN (occurrence: CN)
  Receive Date: 20240410
  Receipt Date: 20240410
  Transmission Date: 20240716
  Serious: Yes (Hospitalization)
  Sender: FDA-Public Use
  Company Number: CN-ELI_LILLY_AND_COMPANY-CN202404001272

PATIENT
  Age: 53 Year
  Sex: Female
  Weight: 40 kg

DRUGS (3)
  1. RAMUCIRUMAB [Suspect]
     Active Substance: RAMUCIRUMAB
     Indication: Gastric cancer
     Dosage: 288 MG, SINGLE
     Route: 041
     Dates: start: 20240219, end: 20240219
  2. SINTILIMAB [Suspect]
     Active Substance: SINTILIMAB
     Indication: Immunomodulatory therapy
     Dosage: 200 MG, SINGLE
     Route: 041
     Dates: start: 20240219, end: 20240219
  3. PACLITAXEL [Suspect]
     Active Substance: PACLITAXEL
     Indication: Gastric cancer
     Dosage: 90 MG, SINGLE (VIA PERFUSION)
     Route: 050
     Dates: start: 20240227, end: 20240227

REACTIONS (2)
  - Myelosuppression [Recovering/Resolving]
  - Epistaxis [Recovering/Resolving]

NARRATIVE: CASE EVENT DATE: 20240228
